FAERS Safety Report 7071584-2 (Version None)
Quarter: 2010Q4

REPORT INFORMATION
  Report Type: 
  Country: None (occurrence: None)
  Receive Date: 20101020
  Receipt Date: 20101004
  Transmission Date: 20110411
  Serious: Yes (Disabling, Other)
  Sender: FDA-Public Use
  Company Number: ACO_02672_2010

PATIENT
  Age: 60 Year
  Sex: Male
  Weight: 122.4712 kg

DRUGS (9)
  1. AMPYRA [Suspect]
     Indication: GAIT DISTURBANCE
     Dates: start: 20100524, end: 20100614
  2. TIZANIDINE HCL [Concomitant]
  3. METFORMIN [Concomitant]
  4. FEXOFENADINE HCL [Concomitant]
  5. FLUOXETINE [Concomitant]
  6. VESICARE [Concomitant]
  7. AMLODIPINE [Concomitant]
  8. QUINAPRIL [Concomitant]
  9. LIPITOR [Concomitant]

REACTIONS (7)
  - ABASIA [None]
  - ASTHENIA [None]
  - BACK PAIN [None]
  - CONDITION AGGRAVATED [None]
  - MICTURITION URGENCY [None]
  - POLLAKIURIA [None]
  - URINARY INCONTINENCE [None]
